FAERS Safety Report 10906845 (Version 1)
Quarter: 2015Q1

REPORT INFORMATION
  Report Type: Spontaneous
  Country: US (occurrence: None)
  Receive Date: 20150309
  Receipt Date: 20150309
  Transmission Date: 20150721
  Serious: Yes (Disabling)
  Sender: FDA-Public Use
  Company Number: None

PATIENT
  Age: 61 Year
  Sex: Female
  Weight: 81.65 kg

DRUGS (14)
  1. ZOCOR [Concomitant]
     Active Substance: SIMVASTATIN
  2. ZEBETA [Concomitant]
     Active Substance: BISOPROLOL FUMARATE
  3. ZONEGRAN [Concomitant]
     Active Substance: ZONISAMIDE
  4. XANAX [Concomitant]
     Active Substance: ALPRAZOLAM
  5. LUVOX [Concomitant]
     Active Substance: FLUVOXAMINE MALEATE
  6. MAGNESIUM [Concomitant]
     Active Substance: MAGNESIUM
  7. MIRALAX [Suspect]
     Active Substance: POLYETHYLENE GLYCOL 3350
     Indication: CONSTIPATION
     Route: 048
  8. TYSABRE IV [Concomitant]
  9. PRILOSEC [Concomitant]
     Active Substance: OMEPRAZOLE MAGNESIUM
  10. FISH OIL [Concomitant]
     Active Substance: FISH OIL
  11. ASPIRIN. [Concomitant]
     Active Substance: ASPIRIN
  12. LEXAPRO [Concomitant]
     Active Substance: ESCITALOPRAM OXALATE
  13. TYLENOL [Concomitant]
     Active Substance: ACETAMINOPHEN
  14. SYNTHROID [Concomitant]
     Active Substance: LEVOTHYROXINE SODIUM

REACTIONS (8)
  - Balance disorder [None]
  - Multiple sclerosis [None]
  - Osteoporosis [None]
  - Skin wrinkling [None]
  - Dysuria [None]
  - Seizure [None]
  - Sinus node dysfunction [None]
  - Arthralgia [None]

NARRATIVE: CASE EVENT DATE: 20150306
